FAERS Safety Report 9018052 (Version 1)
Quarter: 2013Q1

REPORT INFORMATION
  Report Type: Spontaneous
  Country: US (occurrence: None)
  Receive Date: 20130110
  Receipt Date: 20130110
  Transmission Date: 20140127
  Serious: Yes (Hospitalization)
  Sender: FDA-Public Use
  Company Number: None

PATIENT
  Sex: Female
  Weight: 135.17 kg

DRUGS (1)
  1. MONTELUKAST [Suspect]
     Indication: ASTHMA
     Dosage: 10MG 1 DAILY MOUTH
     Route: 048
     Dates: start: 20121205, end: 20121206

REACTIONS (6)
  - Asthma [None]
  - Headache [None]
  - Nausea [None]
  - Chest discomfort [None]
  - Dizziness [None]
  - Product substitution issue [None]
